FAERS Safety Report 4946038-7 (Version None)
Quarter: 2006Q1

REPORT INFORMATION
  Report Type: 
  Country: None (occurrence: None)
  Receive Date: 20060316
  Receipt Date: 20051007
  Transmission Date: 20060701
  Serious: Yes (Hospitalization)
  Sender: FDA-Public Use
  Company Number: US-MERCK-0510USA06362

PATIENT
  Age: 71 Year
  Sex: Female
  Weight: 75 kg

DRUGS (3)
  1. VIOXX [Suspect]
     Indication: ARTHRITIS
     Route: 048
     Dates: start: 19991106, end: 20010413
  2. ZOLOFT [Concomitant]
     Route: 065
  3. PAXIL [Concomitant]
     Route: 065

REACTIONS (28)
  - ADVERSE DRUG REACTION [None]
  - ANAEMIA [None]
  - ANGIONEUROTIC OEDEMA [None]
  - CHRONIC SINUSITIS [None]
  - CONSTIPATION [None]
  - DEHYDRATION [None]
  - DEPRESSION [None]
  - DIVERTICULUM INTESTINAL [None]
  - DYSPHAGIA [None]
  - ESSENTIAL HYPERTENSION [None]
  - FACIAL PALSY [None]
  - GASTRIC ULCER [None]
  - GASTRITIS EROSIVE [None]
  - HIATUS HERNIA [None]
  - HYPOGLYCAEMIA [None]
  - HYPONATRAEMIA [None]
  - INAPPROPRIATE ANTIDIURETIC HORMONE SECRETION [None]
  - IRRITABLE BOWEL SYNDROME [None]
  - ISCHAEMIC STROKE [None]
  - LOBAR PNEUMONIA [None]
  - MALNUTRITION [None]
  - MENTAL STATUS CHANGES [None]
  - NUTRITIONAL SUPPORT [None]
  - PERICARDIAL EFFUSION [None]
  - PLEURAL EFFUSION [None]
  - RENAL FAILURE [None]
  - RESPIRATORY FAILURE [None]
  - TACHYCARDIA [None]
